FAERS Safety Report 21651483 (Version 1)
Quarter: 2022Q4

REPORT INFORMATION
  Report Type: Spontaneous
  Country: US (occurrence: None)
  Receive Date: 20221128
  Receipt Date: 20221128
  Transmission Date: 20230112
  Serious: Yes (Other)
  Sender: FDA-Public Use
  Company Number: 2022A386983

PATIENT
  Age: 80 Year

DRUGS (1)
  1. TAGRISSO [Suspect]
     Active Substance: OSIMERTINIB
     Route: 048

REACTIONS (5)
  - Lung neoplasm malignant [Unknown]
  - Giant cell arteritis [Unknown]
  - Visual impairment [Unknown]
  - Pain [Unknown]
  - Swelling [Unknown]
